FAERS Safety Report 7244207-7 (Version None)
Quarter: 2011Q1

REPORT INFORMATION
  Report Type: 
  Country: None (occurrence: None)
  Receive Date: 20110125
  Receipt Date: 20110120
  Transmission Date: 20110831
  Serious: Yes (Death)
  Sender: FDA-Public Use
  Company Number: US-SHIRE-SPV1-2011-00103

PATIENT
  Age: 8 Year
  Sex: Male

DRUGS (2)
  1. MELATONIN [Suspect]
     Dosage: 3 MG, 1X/DAY:QD
  2. VYVANSE [Suspect]
     Indication: PRODUCT USED FOR UNKNOWN INDICATION
     Dosage: 70 MG, 1X/DAY:QD
     Route: 048

REACTIONS (1)
  - ASPIRATION [None]
